FAERS Safety Report 10524422 (Version 1)
Quarter: 2014Q4

REPORT INFORMATION
  Report Type: Spontaneous
  Country: US (occurrence: None)
  Receive Date: 20141015
  Receipt Date: 20141015
  Transmission Date: 20150528
  Serious: Yes (Other)
  Sender: FDA-Public Use
  Company Number: PR 1715

PATIENT
  Age: 79 Year
  Sex: Female

DRUGS (1)
  1. COSOPT [Suspect]
     Active Substance: DORZOLAMIDE HYDROCHLORIDE\TIMOLOL MALEATE
     Indication: GLAUCOMA
     Dosage: 1 DROP IN BOTH EYES
     Dates: start: 20140930, end: 20140930

REACTIONS (2)
  - Incorrect dose administered by device [None]
  - Intraocular pressure increased [None]

NARRATIVE: CASE EVENT DATE: 20140930
